FAERS Safety Report 22885008 (Version 3)
Quarter: 2023Q4

REPORT INFORMATION
  Report Type: Spontaneous
  Country: DE (occurrence: DE)
  Receive Date: 20230830
  Receipt Date: 20231128
  Transmission Date: 20240110
  Serious: Yes (Other)
  Sender: FDA-Public Use
  Company Number: DE-Albireo AB-2023ALB000233

PATIENT
  Age: 2 Year
  Sex: Male

DRUGS (4)
  1. BYLVAY [Suspect]
     Active Substance: ODEVIXIBAT
     Indication: Progressive familial intrahepatic cholestasis
     Route: 048
  2. BYLVAY [Suspect]
     Active Substance: ODEVIXIBAT
     Route: 048
  3. DEKAS ESSENTIAL [Concomitant]
     Indication: Vitamin supplementation
  4. DEKAS ESSENTIAL [Concomitant]

REACTIONS (5)
  - Hepatocellular carcinoma [Unknown]
  - Off label use [Unknown]
  - Therapy non-responder [Unknown]
  - Faeces soft [Unknown]
  - Progressive familial intrahepatic cholestasis [Unknown]
